FAERS Safety Report 5226307-6 (Version None)
Quarter: 2007Q1

REPORT INFORMATION
  Report Type: 
  Country: None (occurrence: None)
  Receive Date: 20070201
  Receipt Date: 20070124
  Transmission Date: 20070707
  Serious: Yes (Hospitalization, Other)
  Sender: FDA-Public Use
  Company Number: US-ELI_LILLY_AND_COMPANY-US200607002315

PATIENT
  Age: 28 Year
  Sex: Male
  Weight: 88.435 kg

DRUGS (4)
  1. ZYPREXA [Suspect]
     Indication: DEPRESSION
     Dosage: 2.5 MG, UNK
     Dates: start: 20020101, end: 20030101
  2. ZYPREXA [Suspect]
     Dosage: 5 MG, UNK
     Dates: start: 20020101, end: 20030101
  3. ZYPREXA [Suspect]
     Dosage: 7.5 MG, UNK
     Dates: start: 20020101, end: 20030101
  4. ZYPREXA [Suspect]
     Dosage: 10 MG, UNK
     Dates: start: 20020101, end: 20030101

REACTIONS (4)
  - CARDIAC DISORDER [None]
  - DIABETES MELLITUS NON-INSULIN-DEPENDENT [None]
  - HYPERTENSION [None]
  - MYOCARDIAL INFARCTION [None]
